FAERS Safety Report 4578653-7 (Version None)
Quarter: 2005Q1

REPORT INFORMATION
  Report Type: 
  Country: None (occurrence: None)
  Receive Date: 20050209
  Receipt Date: 20050209
  Transmission Date: 20050727
  Serious: No
  Sender: FDA-Public Use
  Company Number: None

PATIENT
  Age: 26 Year
  Sex: Male
  Weight: 73.9363 kg

DRUGS (3)
  1. ARIPIPRAZOLE    30 MG    BRISTOL-MYERS SQUIBB [Suspect]
     Indication: SCHIZOPHRENIA, UNDIFFERENTIATED TYPE
     Dosage: 30 MG   DAILY   ORAL
     Route: 048
     Dates: start: 20040527, end: 20040618
  2. LORAZEPAM [Concomitant]
  3. BENZTROPINE MESYLATE [Concomitant]

REACTIONS (6)
  - COGWHEEL RIGIDITY [None]
  - DROOLING [None]
  - DYSPHAGIA [None]
  - DYSTONIA [None]
  - GAIT DISTURBANCE [None]
  - MUSCULOSKELETAL STIFFNESS [None]
